FAERS Safety Report 22119608 (Version 1)
Quarter: 2023Q1

REPORT INFORMATION
  Report Type: Spontaneous
  Country: US (occurrence: US)
  Receive Date: 20230321
  Receipt Date: 20230321
  Transmission Date: 20230417
  Serious: No
  Sender: FDA-Public Use
  Company Number: US-BIOGEN-2021BI01031809

PATIENT
  Age: 50 Year
  Sex: Female

DRUGS (6)
  1. VUMERITY [Suspect]
     Active Substance: DIROXIMEL FUMARATE
     Indication: Multiple sclerosis
     Route: 050
     Dates: start: 20210713
  2. VUMERITY [Suspect]
     Active Substance: DIROXIMEL FUMARATE
     Route: 050
     Dates: start: 20210722, end: 20210723
  3. VUMERITY [Suspect]
     Active Substance: DIROXIMEL FUMARATE
     Route: 050
     Dates: start: 20210713, end: 20210723
  4. VALACYCLOVIR HYDROCHLORIDE [Concomitant]
     Active Substance: VALACYCLOVIR HYDROCHLORIDE
     Route: 050
  5. GABAPENTIN [Concomitant]
     Active Substance: GABAPENTIN
     Route: 050
  6. GABAPENTIN [Concomitant]
     Active Substance: GABAPENTIN
     Route: 050

REACTIONS (11)
  - Pharyngeal inflammation [Not Recovered/Not Resolved]
  - Cough [Not Recovered/Not Resolved]
  - Oropharyngeal discomfort [Not Recovered/Not Resolved]
  - Amnesia [Not Recovered/Not Resolved]
  - Muscular weakness [Recovered/Resolved]
  - Confusional state [Recovered/Resolved]
  - Aphasia [Recovered/Resolved]
  - Crying [Recovered/Resolved]
  - Diarrhoea [Not Recovered/Not Resolved]
  - Hypersensitivity [Unknown]
  - Abdominal pain upper [Recovered/Resolved]

NARRATIVE: CASE EVENT DATE: 20210713
